FAERS Safety Report 14613455 (Version 1)
Quarter: 2018Q1

REPORT INFORMATION
  Report Type: Spontaneous
  Country: DK (occurrence: DK)
  Receive Date: 20180308
  Receipt Date: 20180308
  Transmission Date: 20180509
  Serious: Yes (Other)
  Sender: FDA-Public Use
  Company Number: DK-BRISTOL-MYERS SQUIBB COMPANY-BMS-2018-019133

PATIENT
  Age: 14 Year
  Sex: Female

DRUGS (1)
  1. KENALOG [Suspect]
     Active Substance: TRIAMCINOLONE ACETONIDE
     Indication: HYPERTROPHIC SCAR
     Dosage: INJEKTIONER 27MAJ2015, 21AUG2015. INJEKTION I DE KRITISKE OMRADER AF ARVV.
     Route: 065

REACTIONS (11)
  - Skin striae [Unknown]
  - Fatigue [Unknown]
  - Abdominal pain [Unknown]
  - Dyspepsia [Unknown]
  - Cortisol decreased [Unknown]
  - Gastrooesophageal reflux disease [Unknown]
  - Pollakiuria [Unknown]
  - Dry mouth [Unknown]
  - Addison^s disease [Not Recovered/Not Resolved]
  - Muscle spasms [Unknown]
  - Menstrual disorder [Unknown]

NARRATIVE: CASE EVENT DATE: 20150101
